FAERS Safety Report 9912937 (Version 1)
Quarter: 2014Q1

REPORT INFORMATION
  Report Type: Spontaneous
  Country: GB (occurrence: None)
  Receive Date: 20140214
  Receipt Date: 20140214
  Transmission Date: 20141002
  Serious: Yes (Other)
  Sender: FDA-Public Use
  Company Number: AUR-APL-2014-01448

PATIENT
  Age: 66 Year
  Sex: Female
  Weight: 50 kg

DRUGS (5)
  1. AMLODIPINE (AMLODIPINE) [Suspect]
     Indication: BLOOD PRESSURE INCREASED
     Route: 048
     Dates: start: 20121210, end: 20121220
  2. ATORVASTATIN (ATORVASTATIN) [Concomitant]
  3. NOVORAPID (INSULIN ASPART) [Concomitant]
  4. LANTUS (INSULIN GLARGINE) [Concomitant]
  5. RAMIPRIL (RAMIPRIL) [Concomitant]

REACTIONS (2)
  - Subacute cutaneous lupus erythematosus [None]
  - Livedo reticularis [None]
